FAERS Safety Report 8455006-2 (Version None)
Quarter: 2012Q2

REPORT INFORMATION
  Report Type: 
  Country: None (occurrence: None)
  Receive Date: 20120621
  Receipt Date: 20120608
  Transmission Date: 20120825
  Serious: Yes (Hospitalization, Other)
  Sender: FDA-Public Use
  Company Number: US-PFIZER INC-2011117324

PATIENT
  Sex: Female

DRUGS (10)
  1. DILANTIN [Suspect]
     Dosage: 100 MG, 3X/DAY
     Route: 042
     Dates: start: 20080723, end: 20080724
  2. DILANTIN [Suspect]
     Dosage: 100 MG, 3X/DAY
     Route: 048
     Dates: start: 20080724, end: 20080725
  3. SINEMET [Concomitant]
     Dosage: UNK
     Route: 048
     Dates: start: 20080802, end: 20080806
  4. KEPPRA [Concomitant]
     Dosage: 500 MG, 2X/DAY
     Route: 048
     Dates: start: 20080805, end: 20080805
  5. DILANTIN [Suspect]
     Indication: CONVULSION PROPHYLAXIS
     Dosage: 1000 MG, UNK
     Route: 042
     Dates: start: 20080723, end: 20080723
  6. DILANTIN [Suspect]
     Dosage: 100 MG, 3X/DAY
     Route: 048
     Dates: start: 20080802, end: 20080805
  7. LEVAQUIN [Concomitant]
     Dosage: UNK
     Route: 048
     Dates: start: 20080802, end: 20080804
  8. DILANTIN [Suspect]
     Dosage: 100 MG, 2X/DAY
     Route: 048
     Dates: start: 20080809
  9. MORPHINE [Concomitant]
     Indication: PAIN
     Dosage: 4 MG, UNK
     Route: 042
     Dates: start: 20080802, end: 20080802
  10. MICRO-K [Concomitant]
     Dosage: UNK
     Dates: start: 20080802, end: 20080806

REACTIONS (1)
  - STEVENS-JOHNSON SYNDROME [None]
